FAERS Safety Report 5759534-X (Version None)
Quarter: 2008Q2

REPORT INFORMATION
  Report Type: 
  Country: None (occurrence: None)
  Receive Date: 20080604
  Receipt Date: 20080604
  Transmission Date: 20081010
  Serious: No
  Sender: FDA-Public Use
  Company Number: None

PATIENT
  Age: 83 Year
  Sex: Female
  Weight: 50 kg

DRUGS (2)
  1. FENTANYL-100 [Suspect]
     Indication: SEDATION
     Dosage: 50 MCG Q 5 MIN IV  X 2 DOSES
     Route: 042
     Dates: start: 20080501
  2. ETOMIDATE [Concomitant]

REACTIONS (1)
  - UNRESPONSIVE TO STIMULI [None]
